FAERS Safety Report 4743800-0 (Version None)
Quarter: 2005Q3

REPORT INFORMATION
  Report Type: 
  Country: None (occurrence: None)
  Receive Date: 20050809
  Receipt Date: 20050727
  Transmission Date: 20060218
  Serious: Yes (Life-Threatening)
  Sender: FDA-Public Use
  Company Number: 2005FR-00154

PATIENT
  Age: 17 Year
  Sex: Female

DRUGS (1)
  1. ACETAMINOPHEN [Suspect]
     Dates: start: 20050621

REACTIONS (2)
  - OVERDOSE [None]
  - SUICIDE ATTEMPT [None]
